FAERS Safety Report 9464787 (Version 2)
Quarter: 2013Q3

REPORT INFORMATION
  Report Type: Report from Study
  Country: GB (occurrence: GB)
  Receive Date: 20130819
  Receipt Date: 20130822
  Transmission Date: 20140515
  Serious: Yes (Hospitalization)
  Sender: FDA-Public Use
  Company Number: GB-GLAXOSMITHKLINE-B0915804A

PATIENT
  Sex: Male
  Weight: 80 kg

DRUGS (4)
  1. LAPATINIB [Suspect]
     Indication: OESOPHAGEAL ADENOCARCINOMA
     Dosage: 1250MG PER DAY
     Route: 048
     Dates: start: 20130723
  2. EPIRUBICIN [Suspect]
     Indication: OESOPHAGEAL ADENOCARCINOMA
     Route: 042
     Dates: start: 20130723
  3. CISPLATIN [Suspect]
     Indication: OESOPHAGEAL ADENOCARCINOMA
     Route: 042
     Dates: start: 20130723
  4. CAPECITABINE [Suspect]
     Indication: OESOPHAGEAL ADENOCARCINOMA
     Dosage: 1000MG TWICE PER DAY
     Route: 048
     Dates: start: 20130723

REACTIONS (1)
  - Lower respiratory tract infection [Recovered/Resolved]
